FAERS Safety Report 22384841 (Version 3)
Quarter: 2024Q1

REPORT INFORMATION
  Report Type: Spontaneous
  Country: US (occurrence: US)
  Receive Date: 20230530
  Receipt Date: 20240311
  Transmission Date: 20240410
  Serious: Yes (Other)
  Sender: FDA-Public Use
  Company Number: US-PFIZER INC-PV202300074130

PATIENT
  Age: 36 Year
  Sex: Male

DRUGS (1)
  1. BENEFIX [Suspect]
     Active Substance: COAGULATION FACTOR IX RECOMBINANT HUMAN\ISOPROPYL ALCOHOL
     Indication: Haemorrhage
     Dosage: 8000 U (+/-10%) DAILY AS NEEDED
     Route: 042

REACTIONS (3)
  - Ankle fracture [Unknown]
  - Wisdom teeth removal [Unknown]
  - Skin laceration [Unknown]

NARRATIVE: CASE EVENT DATE: 20230501
